FAERS Safety Report 15794672 (Version 3)
Quarter: 2019Q1

REPORT INFORMATION
  Report Type: Spontaneous
  Country: US (occurrence: US)
  Receive Date: 20190107
  Receipt Date: 20190227
  Transmission Date: 20190417
  Serious: No
  Sender: FDA-Public Use
  Company Number: US-PFIZER INC-2019008145

PATIENT
  Age: 31 Year
  Sex: Female

DRUGS (1)
  1. EUCRISA [Suspect]
     Active Substance: CRISABOROLE
     Dosage: UNK

REACTIONS (8)
  - Skin irritation [Unknown]
  - Erythema [Unknown]
  - Pain [Unknown]
  - Intentional product misuse [Unknown]
  - Feeling abnormal [Unknown]
  - Swelling [Unknown]
  - Burning sensation [Unknown]
  - Condition aggravated [Unknown]
